FAERS Safety Report 5917338-9 (Version None)
Quarter: 2008Q4

REPORT INFORMATION
  Report Type: 
  Country: None (occurrence: None)
  Receive Date: 20081014
  Receipt Date: 20081006
  Transmission Date: 20090506
  Serious: Yes (Hospitalization)
  Sender: FDA-Public Use
  Company Number: US-ELI_LILLY_AND_COMPANY-US200810001522

PATIENT
  Sex: Female

DRUGS (1)
  1. FORTEO [Suspect]
     Dates: start: 20080420, end: 20080424

REACTIONS (5)
  - AMNESIA [None]
  - CHILLS [None]
  - DECREASED APPETITE [None]
  - DEHYDRATION [None]
  - MALAISE [None]
